FAERS Safety Report 9355409 (Version 1)
Quarter: 2013Q2

REPORT INFORMATION
  Report Type: Spontaneous
  Country: US (occurrence: US)
  Receive Date: 20130619
  Receipt Date: 20130619
  Transmission Date: 20140414
  Serious: No
  Sender: FDA-Public Use
  Company Number: US-BAYER-2013-074918

PATIENT
  Sex: Male

DRUGS (1)
  1. LEVITRA [Suspect]
     Dosage: 20 MG, UNK

REACTIONS (2)
  - Erection increased [None]
  - Painful erection [None]
